FAERS Safety Report 10882611 (Version 4)
Quarter: 2015Q2

REPORT INFORMATION
  Report Type: Spontaneous
  Country: US (occurrence: US)
  Receive Date: 20150226
  Receipt Date: 20150513
  Transmission Date: 20150821
  Serious: Yes (Hospitalization, Other)
  Sender: FDA-Public Use
  Company Number: 2752201

PATIENT
  Age: 52 Year
  Sex: Female
  Weight: 69.3 kg

DRUGS (10)
  1. EXCEDRIN MIGRAINE [Concomitant]
     Active Substance: ACETAMINOPHEN\ASPIRIN\CAFFEINE
     Indication: PRODUCT USED FOR UNKNOWN INDICATION
     Route: 048
  2. KETOROLAC [Suspect]
     Active Substance: KETOROLAC\KETOROLAC TROMETHAMINE
     Indication: MIGRAINE
     Route: 030
     Dates: start: 20150124, end: 20150125
  3. FUROSEMIDE. [Concomitant]
     Active Substance: FUROSEMIDE
     Indication: SWELLING
     Dosage: EVERY DAY
     Route: 048
  4. AMERGE [Concomitant]
     Active Substance: NARATRIPTAN HYDROCHLORIDE
     Indication: HEADACHE
     Dosage: ONCE
     Route: 048
     Dates: end: 20150126
  5. MIRAPEX [Concomitant]
     Active Substance: PRAMIPEXOLE DIHYDROCHLORIDE
     Indication: PRODUCT USED FOR UNKNOWN INDICATION
     Dosage: EVERY NIGHT
     Route: 048
     Dates: end: 20150125
  6. CLONIDINE. [Concomitant]
     Active Substance: CLONIDINE
     Indication: SLEEP DISORDER
     Dosage: 4 TIMES PER DAY
     Route: 048
     Dates: end: 2015
  7. WELLBUTRIN [Concomitant]
     Active Substance: BUPROPION HYDROCHLORIDE
     Indication: PRODUCT USED FOR UNKNOWN INDICATION
     Dosage: EVERY MORNING
     Route: 048
     Dates: end: 20150127
  8. XANAX [Concomitant]
     Active Substance: ALPRAZOLAM
     Indication: PRODUCT USED FOR UNKNOWN INDICATION
     Route: 048
     Dates: end: 20150126
  9. FLEXERIL [Concomitant]
     Active Substance: CYCLOBENZAPRINE HYDROCHLORIDE
     Indication: SLEEP DISORDER
     Dosage: EVERY NIGHT
     Route: 048
  10. HALOPERIDOL. [Concomitant]
     Active Substance: HALOPERIDOL
     Indication: NAUSEA
     Dosage: 2-4 MG, 3 TIMES PER DAY
     Route: 048
     Dates: end: 20150127

REACTIONS (11)
  - Drug administration error [Unknown]
  - Myocardial infarction [Unknown]
  - Muscle spasms [Unknown]
  - Vomiting [Unknown]
  - Hypertension [Unknown]
  - Nausea [Unknown]
  - Dehydration [Unknown]
  - Malaise [Unknown]
  - Product contamination [Unknown]
  - Pain [Unknown]
  - Injection site infection [Unknown]

NARRATIVE: CASE EVENT DATE: 20150124
